FAERS Safety Report 6013994-8 (Version None)
Quarter: 2008Q4

REPORT INFORMATION
  Report Type: 
  Country: None (occurrence: None)
  Receive Date: 20081216
  Receipt Date: 20080606
  Transmission Date: 20090506
  Serious: Yes (Other)
  Sender: FDA-Public Use
  Company Number: US-WYE-H04402608

PATIENT
  Age: 43 Year
  Sex: Male
  Weight: 108.96 kg

DRUGS (4)
  1. EFFEXOR XR [Suspect]
     Indication: DEPRESSION
     Dosage: 150 MG, FREQUENCY UNKNOWN, ORAL : 75 MG, FREQUENCY UNKNOWN, ORAL
     Route: 048
     Dates: start: 20070101, end: 20070101
  2. EFFEXOR XR [Suspect]
     Indication: SOCIAL PHOBIA
     Dosage: 150 MG, FREQUENCY UNKNOWN, ORAL : 75 MG, FREQUENCY UNKNOWN, ORAL
     Route: 048
     Dates: start: 20070101, end: 20070101
  3. EFFEXOR XR [Suspect]
     Indication: DEPRESSION
     Dosage: 150 MG, FREQUENCY UNKNOWN, ORAL : 75 MG, FREQUENCY UNKNOWN, ORAL
     Route: 048
     Dates: start: 20070101, end: 20070101
  4. EFFEXOR XR [Suspect]
     Indication: SOCIAL PHOBIA
     Dosage: 150 MG, FREQUENCY UNKNOWN, ORAL : 75 MG, FREQUENCY UNKNOWN, ORAL
     Route: 048
     Dates: start: 20070101, end: 20070101

REACTIONS (3)
  - BLOOD PRESSURE INCREASED [None]
  - DRUG EFFECT DECREASED [None]
  - URINARY RETENTION [None]
